FAERS Safety Report 4559502-X (Version None)
Quarter: 2005Q1

REPORT INFORMATION
  Report Type: 
  Country: None (occurrence: None)
  Receive Date: 20050119
  Receipt Date: 20040609
  Transmission Date: 20050727
  Serious: Yes (Hospitalization, Other)
  Sender: FDA-Public Use
  Company Number: 2002089456NL

PATIENT
  Age: 54 Year
  Sex: Male

DRUGS (3)
  1. IRINOTECAN HCL [Suspect]
     Indication: COLORECTAL CANCER
     Dosage: 405 MG (CYCLIC), INTRAVENOUS
     Route: 042
     Dates: start: 20011211, end: 20011212
  2. FLUOROURACIL [Suspect]
     Indication: COLORECTAL CANCER
     Dosage: 904 MG (CYCLIC), INTRAVENOUS
     Route: 042
     Dates: start: 20011211, end: 20011212
  3. LEUCOVORIN CALCIUM [Suspect]
     Indication: COLORECTAL CANCER
     Dosage: 452 MG (CYCLIC), INTRAVENOUS
     Route: 042
     Dates: start: 20011211, end: 20011212

REACTIONS (3)
  - OEDEMA PERIPHERAL [None]
  - PHLEBOTHROMBOSIS [None]
  - POST THROMBOTIC SYNDROME [None]
